FAERS Safety Report 17869024 (Version 1)
Quarter: 2020Q2

REPORT INFORMATION
  Report Type: Report from Study
  Country: None (occurrence: BE)
  Receive Date: 20200608
  Receipt Date: 20200608
  Transmission Date: 20200714
  Serious: Yes (Hospitalization)
  Sender: FDA-Public Use
  Company Number: BE-ABBVIE-20K-013-3432779-00

PATIENT
  Sex: Female
  Weight: 53 kg

DRUGS (9)
  1. DUODOPA [Suspect]
     Active Substance: CARBIDOPA\LEVODOPA
     Dosage: MD=5.5ML, CD=1.9ML/HR DURING 16HRS, ED=2ML
     Route: 050
     Dates: start: 20190325, end: 20190611
  2. DUODOPA [Suspect]
     Active Substance: CARBIDOPA\LEVODOPA
     Dosage: DOSES CONTINUOUSLY MONITORED AND ADAPTED
     Route: 050
     Dates: start: 20190611, end: 20200513
  3. DUODOPA [Suspect]
     Active Substance: CARBIDOPA\LEVODOPA
     Dosage: MD=6.0ML, CD=1.9ML/HR DURING 16HRS, ED=2ML
     Route: 050
     Dates: start: 2020, end: 20200605
  4. PARACETAMOL [Concomitant]
     Active Substance: ACETAMINOPHEN
     Indication: PRODUCT USED FOR UNKNOWN INDICATION
     Dosage: ONLY WHEN NECESSARY
  5. DUODOPA [Suspect]
     Active Substance: CARBIDOPA\LEVODOPA
     Indication: PARKINSON^S DISEASE
     Dosage: UNKNOWN DOSAGES
     Route: 050
     Dates: start: 20180522, end: 20190325
  6. ZOPICLON [Concomitant]
     Active Substance: ZOPICLONE
     Indication: PRODUCT USED FOR UNKNOWN INDICATION
  7. ASAFLOW [Concomitant]
     Active Substance: ASPIRIN
     Indication: PRODUCT USED FOR UNKNOWN INDICATION
  8. DUODOPA [Suspect]
     Active Substance: CARBIDOPA\LEVODOPA
     Dosage: MD=4.0ML, CD=1.7ML/HR DURING 16HRS, ED=2ML
     Route: 050
     Dates: start: 20200605
  9. DUODOPA [Suspect]
     Active Substance: CARBIDOPA\LEVODOPA
     Dosage: MD=6.0ML, CD=2.1ML/HR DURING 16HRS, ED=2ML
     Route: 050
     Dates: start: 20200513, end: 2020

REACTIONS (6)
  - Pelvic fracture [Unknown]
  - Fall [Recovered/Resolved]
  - Immobile [Unknown]
  - Dyskinesia [Unknown]
  - Device occlusion [Unknown]
  - Hip fracture [Unknown]

NARRATIVE: CASE EVENT DATE: 2020
